FAERS Safety Report 23026873 (Version 1)
Quarter: 2023Q4

REPORT INFORMATION
  Report Type: Spontaneous
  Country: US (occurrence: None)
  Receive Date: 20231003
  Receipt Date: 20231003
  Transmission Date: 20240110
  Serious: No
  Sender: FDA-Public Use
  Company Number: None

PATIENT
  Sex: Female

DRUGS (1)
  1. COSENTYX [Suspect]
     Active Substance: SECUKINUMAB
     Indication: Ankylosing spondylitis
     Route: 058
     Dates: start: 202302

REACTIONS (5)
  - SARS-CoV-2 test positive [None]
  - Feeling abnormal [None]
  - Ear pain [None]
  - Drug ineffective [None]
  - Hypoacusis [None]
